FAERS Safety Report 7794967-1 (Version None)
Quarter: 2011Q4

REPORT INFORMATION
  Report Type: 
  Country: None (occurrence: None)
  Receive Date: 20111004
  Receipt Date: 20110923
  Transmission Date: 20120403
  Serious: Yes (Hospitalization)
  Sender: FDA-Public Use
  Company Number: PHHY2011US86131

PATIENT
  Sex: Male
  Weight: 149.8 kg

DRUGS (4)
  1. MYFORTIC [Suspect]
     Indication: RENAL TRANSPLANT
  2. ALLOPURINOL [Concomitant]
     Dosage: 400 MG, UNK
     Route: 048
     Dates: end: 20101227
  3. CYCLOSPORINE [Concomitant]
     Dosage: 300 MG AM + 275 MG PM
     Dates: start: 20080101, end: 20101227
  4. PREDNISONE [Concomitant]
     Dosage: 7.5 MG, UNK
     Dates: start: 20080101, end: 20101227

REACTIONS (5)
  - HEADACHE [None]
  - MENINGITIS ASEPTIC [None]
  - HYPERACUSIS [None]
  - NECK PAIN [None]
  - PHOTOPHOBIA [None]
